FAERS Safety Report 4762940-3 (Version None)
Quarter: 2005Q3

REPORT INFORMATION
  Report Type: 
  Country: None (occurrence: None)
  Receive Date: 20050907
  Receipt Date: 20050719
  Transmission Date: 20060218
  Serious: Yes (Other)
  Sender: FDA-Public Use
  Company Number: US-AMGEN-US143205

PATIENT
  Sex: Female

DRUGS (12)
  1. ENBREL [Suspect]
     Indication: PSORIASIS
     Route: 065
     Dates: start: 20040601
  2. ENBREL [Suspect]
     Indication: PSORIATIC ARTHROPATHY
  3. CELEBREX [Concomitant]
  4. DOVONEX [Concomitant]
  5. FLEXERIL [Concomitant]
  6. NORVASC [Concomitant]
  7. CLARITIN [Concomitant]
  8. TOPROL-XL [Concomitant]
  9. HYDROCODONE BITARTRATE [Concomitant]
  10. LOPID [Concomitant]
  11. PRAVACHOL [Concomitant]
  12. ACIPHEX [Concomitant]

REACTIONS (5)
  - BACK DISORDER [None]
  - INJECTION SITE ERYTHEMA [None]
  - INJECTION SITE HAEMORRHAGE [None]
  - INJECTION SITE PAIN [None]
  - SURGERY [None]
